FAERS Safety Report 4430671-5 (Version None)
Quarter: 2004Q3

REPORT INFORMATION
  Report Type: 
  Country: None (occurrence: None)
  Receive Date: 20040818
  Receipt Date: 20040809
  Transmission Date: 20050211
  Serious: Yes (Hospitalization)
  Sender: FDA-Public Use
  Company Number: 2004UW16843

PATIENT
  Age: 92 Year
  Sex: Female

DRUGS (1)
  1. ELAVIL [Suspect]
     Indication: POST HERPETIC NEURALGIA
     Dosage: 10 MG TID PO
     Route: 048
     Dates: start: 20040615, end: 20040802

REACTIONS (2)
  - PYREXIA [None]
  - RHABDOMYOLYSIS [None]
